FAERS Safety Report 7494560-4 (Version None)
Quarter: 2011Q2

REPORT INFORMATION
  Report Type: 
  Country: None (occurrence: None)
  Receive Date: 20110520
  Receipt Date: 20110512
  Transmission Date: 20111010
  Serious: Yes (Other)
  Sender: FDA-Public Use
  Company Number: PHHY2011BR40849

PATIENT
  Age: 65 Year
  Sex: Male

DRUGS (3)
  1. VOLTAREN [Suspect]
     Indication: PAIN
     Dosage: 100 MG
  2. VOLTAREN [Suspect]
     Dosage: 50 MG, BID
  3. COLCHICINE [Concomitant]
     Indication: PAIN

REACTIONS (3)
  - STRESS [None]
  - DRUG INTOLERANCE [None]
  - ABDOMINAL DISCOMFORT [None]
